FAERS Safety Report 6445604-X (Version None)
Quarter: 2009Q4

REPORT INFORMATION
  Report Type: 
  Country: None (occurrence: None)
  Receive Date: 20091118
  Receipt Date: 20091118
  Transmission Date: 20100525
  Serious: Yes (Other)
  Sender: FDA-Public Use
  Company Number: None

PATIENT
  Sex: Female
  Weight: 135.1719 kg

DRUGS (1)
  1. VERAPAMIL [Suspect]
     Dosage: 120 MG QD BY MOUTH
     Route: 048
     Dates: start: 20050501, end: 20081201

REACTIONS (10)
  - ABASIA [None]
  - ASPHYXIA [None]
  - ASTHENIA [None]
  - CARDIAC FAILURE CONGESTIVE [None]
  - GINGIVAL PAIN [None]
  - PAIN [None]
  - PNEUMONIA [None]
  - PULMONARY CONGESTION [None]
  - RASH [None]
  - UNEVALUABLE EVENT [None]
